FAERS Safety Report 4633364-4 (Version None)
Quarter: 2005Q2

REPORT INFORMATION
  Report Type: 
  Country: None (occurrence: None)
  Receive Date: 20050412
  Receipt Date: 20050319
  Transmission Date: 20051028
  Serious: Yes (Death)
  Sender: FDA-Public Use
  Company Number: ENTC2005-0083

PATIENT
  Sex: Male

DRUGS (7)
  1. STALEVO 100 [Suspect]
     Dosage: 400 MG ORAL
     Route: 048
     Dates: start: 20041004
  2. SEROQUEL [Concomitant]
  3. CIPRALEX (ESCITALOPRAM) [Concomitant]
  4. MOTILIUM [Concomitant]
  5. NORMOXIN [Concomitant]
  6. EXELON [Concomitant]
  7. MADOPAR [Concomitant]

REACTIONS (2)
  - FALL [None]
  - GENERAL PHYSICAL HEALTH DETERIORATION [None]
